FAERS Safety Report 9732628 (Version 2)
Quarter: 2014Q1

REPORT INFORMATION
  Report Type: Report from Study
  Country: US (occurrence: US)
  Receive Date: 20131205
  Receipt Date: 20140328
  Transmission Date: 20141002
  Serious: Yes (Hospitalization, Other)
  Sender: FDA-Public Use
  Company Number: US-BAYER-2013-147389

PATIENT
  Age: 58 Year
  Sex: Female

DRUGS (16)
  1. BETASERON [Suspect]
     Indication: RELAPSING-REMITTING MULTIPLE SCLEROSIS
     Dosage: UNK
     Route: 058
     Dates: start: 20090916, end: 20120327
  2. BETASERON [Suspect]
     Indication: RELAPSING-REMITTING MULTIPLE SCLEROSIS
     Dosage: 8 MIU, QOD
     Route: 058
     Dates: start: 20120403
  3. LEXAPRO [Concomitant]
     Dosage: 1 TABLET DAILY
  4. BACLOFEN [Concomitant]
     Dosage: 1 DF, BID
     Route: 048
  5. VITAMIN E [Concomitant]
     Dosage: 1 PILL DAILY
  6. VITAMIN B COMPLEX [Concomitant]
     Dosage: ONE DAILY
  7. SYNTHROID [Concomitant]
     Dosage: 1 Q DAILY
  8. RESTASIS [Concomitant]
     Dosage: 1 GTT EACH EYE, BID
     Route: 047
  9. VITAMIN C [Concomitant]
     Dosage: 1 TABLET DAILY
  10. CALCIUM [Concomitant]
     Dosage: 1 TABLET DAILY
  11. CRESTOR [Concomitant]
     Dosage: 1.5 TABLETS DAILY
  12. COQ10 [Concomitant]
     Dosage: 1 Q DAILY
  13. VITAMIN D [Concomitant]
     Dosage: 1 TABLET DAILY
     Route: 048
  14. AGGRENOX [Concomitant]
     Dosage: 1 DF, BID
  15. NEXIUM [Concomitant]
     Dosage: 1 TABLET DAILY
     Route: 048
  16. ASPIRIN [Concomitant]
     Dosage: 1 TABLET DAILY
     Route: 048

REACTIONS (7)
  - Atrioventricular block second degree [Not Recovered/Not Resolved]
  - Dyspnoea [Recovered/Resolved]
  - Dizziness [Not Recovered/Not Resolved]
  - Multiple sclerosis [Not Recovered/Not Resolved]
  - Neck pain [Not Recovered/Not Resolved]
  - Back pain [Not Recovered/Not Resolved]
  - Weight decreased [None]
